FAERS Safety Report 19974563 (Version 3)
Quarter: 2022Q2

REPORT INFORMATION
  Report Type: Spontaneous
  Country: US (occurrence: US)
  Receive Date: 20211020
  Receipt Date: 20220613
  Transmission Date: 20220721
  Serious: Yes (Other)
  Sender: FDA-Public Use
  Company Number: US-PFIZER INC-2016108234

PATIENT
  Age: 75 Year
  Sex: Male

DRUGS (5)
  1. RELPAX [Suspect]
     Active Substance: ELETRIPTAN HYDROBROMIDE
     Indication: Migraine with aura
     Dosage: 40 MG, AS NEEDED (1 TABLET AS NEEDED ONE TIME PRN MIGRAINE. MAY REPEAT X 1 AFTER 2 HOURS IF NEEDED)
     Route: 048
  2. WELCHOL [Concomitant]
     Active Substance: COLESEVELAM HYDROCHLORIDE
     Dosage: 625 G, 2X/DAY
     Route: 048
     Dates: start: 20160113
  3. DULOXETINE [Concomitant]
     Active Substance: DULOXETINE
     Dosage: 60 G, 1X/DAY
     Route: 048
  4. LISINOPRIL [Concomitant]
     Active Substance: LISINOPRIL
     Dosage: 20 G, 1X/DAY (QAM)
     Route: 048
     Dates: start: 20160113
  5. TAMSULOSIN [Concomitant]
     Active Substance: TAMSULOSIN
     Dosage: 0.4 G (QNI)
     Route: 048

REACTIONS (2)
  - Blindness [Unknown]
  - Hypoacusis [Unknown]
